FAERS Safety Report 4360660-0 (Version None)
Quarter: 2004Q2

REPORT INFORMATION
  Report Type: 
  Country: None (occurrence: None)
  Receive Date: 20040518
  Receipt Date: 20040518
  Transmission Date: 20050107
  Serious: Yes (Hospitalization)
  Sender: FDA-Public Use
  Company Number: None

PATIENT
  Age: 56 Year
  Sex: Female
  Weight: 56.246 kg

DRUGS (7)
  1. TAXOTERE [Suspect]
     Indication: BREAST CANCER
     Dosage: 75 MG IV Q 3 WEEKS
     Route: 042
     Dates: start: 20040505
  2. CARBOPLATIN [Suspect]
     Indication: BREAST CANCER
     Dosage: AUC 6 Q 3 WEEKS
     Dates: start: 20040505
  3. HERCEPTIN 2MG/M2 IV 5/5/04-5/12 [Suspect]
  4. TYLENOL [Concomitant]
  5. BENADRYL [Concomitant]
  6. ATIVAN [Concomitant]
  7. ZOFRAN [Concomitant]

REACTIONS (2)
  - CULTURE URINE POSITIVE [None]
  - FEBRILE NEUTROPENIA [None]
